FAERS Safety Report 9528123 (Version 1)
Quarter: 2013Q3

REPORT INFORMATION
  Report Type: Spontaneous
  Country: US (occurrence: US)
  Receive Date: 20130917
  Receipt Date: 20130917
  Transmission Date: 20140515
  Serious: No
  Sender: FDA-Public Use
  Company Number: US-B.I. PHARMACEUTICALS,INC./RIDGEFIELD-2013-BI-27287BP

PATIENT
  Sex: Female

DRUGS (13)
  1. MOBIC [Suspect]
  2. XELJANZ [Suspect]
     Indication: RHEUMATOID ARTHRITIS
     Dosage: 10 MG
     Route: 048
  3. METHOTREXATE [Concomitant]
  4. LEFLUNOMIDE [Concomitant]
  5. PREDNISONE [Concomitant]
  6. FISH OIL [Concomitant]
  7. VITAMIN C [Concomitant]
  8. CALCIUM [Concomitant]
  9. POT CHLOR [Concomitant]
  10. LOSARTAN [Concomitant]
  11. FOLIC ACID [Concomitant]
  12. SPIRONOLACTONE [Concomitant]
     Dosage: STRENGTH:500/50MG
  13. ADVAIR INHALER [Concomitant]
     Dosage: FORMULATION: INHALER

REACTIONS (4)
  - Drug hypersensitivity [Unknown]
  - Laboratory test abnormal [Unknown]
  - Fatigue [Unknown]
  - Somnolence [Unknown]
